FAERS Safety Report 5331620-8 (Version None)
Quarter: 2007Q2

REPORT INFORMATION
  Report Type: 
  Country: None (occurrence: None)
  Receive Date: 20070522
  Receipt Date: 20070511
  Transmission Date: 20071010
  Serious: Yes (Other)
  Sender: FDA-Public Use
  Company Number: US-PFIZER INC-2007039024

PATIENT
  Sex: Male
  Weight: 79.8 kg

DRUGS (1)
  1. LYRICA [Suspect]

REACTIONS (3)
  - ABASIA [None]
  - ASTHENIA [None]
  - HYPOAESTHESIA [None]
